FAERS Safety Report 20039845 (Version 2)
Quarter: 2021Q4

REPORT INFORMATION
  Report Type: Spontaneous
  Country: AU (occurrence: AU)
  Receive Date: 20211106
  Receipt Date: 20211123
  Transmission Date: 20220304
  Serious: Yes (Other)
  Sender: FDA-Public Use
  Company Number: AU-009507513-2110AUS008931

PATIENT
  Age: 74 Year
  Sex: Male

DRUGS (2)
  1. ERTAPENEM SODIUM [Suspect]
     Active Substance: ERTAPENEM SODIUM
     Indication: Osteomyelitis
     Dosage: 1G DAILY OR 500 MG FOR PATIENT WITH AN ESTIMATED GLOMERULAR FILTRATION RATE LESS THAN 30 ML/MIN
     Route: 058
  2. SODIUM CHLORIDE [Concomitant]
     Active Substance: SODIUM CHLORIDE
     Dosage: 50 MILLILITER

REACTIONS (3)
  - Toxic encephalopathy [Recovered/Resolved]
  - Intentional product use issue [Unknown]
  - Product use in unapproved indication [Unknown]
